FAERS Safety Report 9260294 (Version 1)
Quarter: 2013Q2

REPORT INFORMATION
  Report Type: Spontaneous
  Country: CA (occurrence: CA)
  Receive Date: 20130429
  Receipt Date: 20130429
  Transmission Date: 20140414
  Serious: Yes (Life-Threatening, Other)
  Sender: FDA-Public Use
  Company Number: CA-TEVA-400723USA

PATIENT
  Age: 83 Year
  Sex: Male

DRUGS (1)
  1. AMOXICILLIN W/CLAVULANIC ACID TEVA [Suspect]
     Dosage: 1750 MILLIGRAM DAILY;
     Route: 048

REACTIONS (5)
  - Chills [Recovered/Resolved]
  - Hypotension [Recovered/Resolved]
  - Rash maculo-papular [Recovered/Resolved]
  - Tachycardia [Recovered/Resolved]
  - Wheezing [Recovered/Resolved]
